FAERS Safety Report 21784490 (Version 1)
Quarter: 2022Q4

REPORT INFORMATION
  Report Type: Spontaneous
  Country: US (occurrence: US)
  Receive Date: 20221227
  Receipt Date: 20221227
  Transmission Date: 20230113
  Serious: Yes (Hospitalization, Other)
  Sender: FDA-Public Use
  Company Number: US-PFIZER INC-PV202200128713

PATIENT
  Age: 80 Year
  Sex: Female

DRUGS (1)
  1. GLUCOTROL [Suspect]
     Active Substance: GLIPIZIDE
     Dosage: UNK
     Route: 048

REACTIONS (2)
  - Accidental exposure to product [Unknown]
  - Shock hypoglycaemic [Unknown]
